FAERS Safety Report 8338372-8 (Version None)
Quarter: 2012Q2

REPORT INFORMATION
  Report Type: 
  Country: None (occurrence: None)
  Receive Date: 20120504
  Receipt Date: 20120426
  Transmission Date: 20120825
  Serious: Yes (Other)
  Sender: FDA-Public Use
  Company Number: US-ROCHE-1037814

PATIENT
  Sex: Male

DRUGS (1)
  1. ZELBORAF [Suspect]
     Indication: PRODUCT USED FOR UNKNOWN INDICATION

REACTIONS (9)
  - HERPES ZOSTER [None]
  - ARTHRALGIA [None]
  - NEOPLASM PROGRESSION [None]
  - DECREASED APPETITE [None]
  - VISION BLURRED [None]
  - SKIN DISORDER [None]
  - FATIGUE [None]
  - NEUROPATHY PERIPHERAL [None]
  - ALOPECIA [None]
